FAERS Safety Report 8884834 (Version 1)
Quarter: 2012Q4

REPORT INFORMATION
  Report Type: 
  Country: US (occurrence: US)
  Receive Date: 20121102
  Receipt Date: 20121102
  Transmission Date: 20130627
  Serious: No
  Sender: FDA-Public Use
  Company Number: US-ASTRAZENECA-2012SE80005

PATIENT
  Sex: Female

DRUGS (1)
  1. SYMBICORT [Suspect]
     Indication: CHRONIC OBSTRUCTIVE PULMONARY DISEASE
     Dosage: 160/4.5 UNKNOWN
     Route: 055

REACTIONS (4)
  - Eye pruritus [Unknown]
  - Lacrimation increased [Unknown]
  - Dry eye [Unknown]
  - Sinus disorder [Unknown]
